FAERS Safety Report 9290764 (Version 6)
Quarter: 2013Q3

REPORT INFORMATION
  Report Type: Report from Study
  Country: None (occurrence: US)
  Receive Date: 20130515
  Receipt Date: 20130719
  Transmission Date: 20140515
  Serious: Yes (Life-Threatening, Hospitalization)
  Sender: FDA-Public Use
  Company Number: US-EISAI INC-E7389-03822-CLI-US

PATIENT
  Age: 60 Year
  Sex: Female
  Weight: 103 kg

DRUGS (47)
  1. HALAVEN [Suspect]
     Indication: BREAST CANCER METASTATIC
     Route: 041
     Dates: start: 20130207, end: 20130409
  2. LORTAB [Concomitant]
     Indication: BONE PAIN
     Route: 048
     Dates: start: 20111101
  3. LORTAB [Concomitant]
     Indication: ABDOMINAL PAIN
  4. DESYREL [Concomitant]
     Indication: INSOMNIA
     Dates: start: 20120209
  5. ZOFRAN [Concomitant]
     Indication: NAUSEA
     Dates: start: 20120619
  6. LASIX [Concomitant]
     Indication: HYPERTENSION
     Dates: start: 20121031
  7. METHADONE [Concomitant]
     Indication: BONE PAIN
     Dates: start: 20130205
  8. METHADONE [Concomitant]
     Indication: ABDOMINAL PAIN
  9. NORVASC [Concomitant]
     Indication: HYPERTENSION
     Dates: start: 20100422
  10. DECADRON [Concomitant]
     Indication: PREMEDICATION
     Dates: start: 20130207
  11. DIFLUCAN [Concomitant]
     Indication: SKIN INFECTION
     Dates: start: 20130214
  12. NEXIUM [Concomitant]
     Indication: GASTROOESOPHAGEAL REFLUX DISEASE
     Dates: start: 20130214
  13. LEXAPRO [Concomitant]
     Indication: DEPRESSION
     Dates: start: 20130228
  14. LEXAPRO [Concomitant]
     Indication: ANXIETY
  15. XARELTO [Concomitant]
     Indication: ANTICOAGULANT THERAPY
     Dates: start: 20130411
  16. XARELTO [Concomitant]
     Dates: start: 20130320, end: 20130410
  17. PHENERGAN [Concomitant]
     Indication: NAUSEA
     Dates: start: 20130321
  18. PHENERGAN [Concomitant]
     Indication: VOMITING
  19. BACTRIM [Concomitant]
     Indication: CELLULITIS
     Dates: start: 20130321
  20. BENADRYL [Concomitant]
     Indication: RASH
     Dates: start: 20130228
  21. BENADRYL [Concomitant]
     Indication: SKIN INFECTION
  22. MOTRIN [Concomitant]
     Indication: PAIN
     Dates: start: 20130228
  23. DOXYCYCLINE [Concomitant]
     Indication: OEDEMA
     Dates: start: 20130307
  24. OXYGEN [Concomitant]
     Indication: DYSPNOEA
     Route: 055
     Dates: start: 20130321, end: 20130429
  25. OXYGEN [Concomitant]
     Indication: HYPOXIA
  26. NYSTATIN [Concomitant]
     Indication: MUCOSAL INFLAMMATION
     Dates: start: 20120919
  27. LIDOCAINE [Concomitant]
     Indication: MUCOSAL INFLAMMATION
     Dates: start: 20120919
  28. DIPHENHYDRAMINE [Concomitant]
     Indication: MUCOSAL INFLAMMATION
     Dates: start: 20120919
  29. POTASSIUM [Concomitant]
     Indication: MINERAL SUPPLEMENTATION
     Route: 042
     Dates: start: 20130418, end: 20130418
  30. MAGNESIUM HYDROXIDE [Concomitant]
     Indication: CONSTIPATION
     Route: 048
     Dates: start: 20130423
  31. DUONEB [Concomitant]
     Indication: RESPIRATORY FAILURE
     Route: 048
     Dates: start: 20130429
  32. ALBUTEROL [Concomitant]
     Indication: RESPIRATORY FAILURE
     Route: 055
     Dates: start: 20130429, end: 20130503
  33. AZTREONAM [Concomitant]
     Indication: BRONCHOPNEUMONIA
     Route: 055
     Dates: start: 20130429, end: 20130503
  34. PREDNISONE [Concomitant]
     Indication: RESPIRATORY FAILURE
     Route: 048
     Dates: start: 20130503, end: 20130505
  35. PREDNISONE [Concomitant]
     Route: 048
     Dates: start: 20130506, end: 20130509
  36. PREDNISONE [Concomitant]
     Route: 048
     Dates: start: 20130510, end: 20130513
  37. PREDNISONE [Concomitant]
     Route: 048
     Dates: start: 20130418, end: 20130418
  38. NOVOLOG [Concomitant]
     Indication: HYPERGLYCAEMIA
     Route: 058
     Dates: start: 20130429, end: 20130503
  39. SYMBICORT [Concomitant]
     Indication: DYSPNOEA
     Route: 055
     Dates: start: 20130429
  40. CLOTRIMAZOLE [Concomitant]
     Indication: ORAL PAIN
     Route: 048
     Dates: start: 20130503
  41. NEUPOGEN [Concomitant]
     Indication: NEUTROPENIA
     Route: 058
     Dates: start: 20130429, end: 20130429
  42. BISACODYL [Concomitant]
     Indication: CONSTIPATION
     Route: 048
     Dates: start: 20130429, end: 20130503
  43. DOCUSATE [Concomitant]
     Indication: CONSTIPATION
     Route: 048
     Dates: start: 20130429, end: 20130503
  44. ACETAMINOPHEN [Concomitant]
     Indication: PAIN
     Route: 048
     Dates: start: 20130429, end: 20130503
  45. MAALOX [Concomitant]
     Indication: PROPHYLAXIS
     Route: 048
     Dates: start: 20130429, end: 20130503
  46. LORAZEPAM [Concomitant]
     Indication: ANXIETY
     Route: 048
     Dates: start: 20130429, end: 20130503
  47. BACID [Concomitant]
     Indication: PROBIOTIC THERAPY
     Route: 048
     Dates: start: 20130503

REACTIONS (2)
  - Respiratory failure [Recovered/Resolved]
  - Lung infection [Recovered/Resolved]
